FAERS Safety Report 4601903-5 (Version None)
Quarter: 2005Q1

REPORT INFORMATION
  Report Type: 
  Country: None (occurrence: None)
  Receive Date: 20050131
  Receipt Date: 20040930
  Transmission Date: 20050727
  Serious: Yes (Other)
  Sender: FDA-Public Use
  Company Number: 200417457US

PATIENT
  Age: 45 Year
  Sex: Female

DRUGS (1)
  1. KETEK [Suspect]
     Indication: PNEUMONIA
     Dosage: 400 MG QD PO
     Route: 048
     Dates: start: 20040922, end: 20040923

REACTIONS (12)
  - ABNORMAL SENSATION IN EYE [None]
  - ASTHENIA [None]
  - DYSPHAGIA [None]
  - DYSPNOEA [None]
  - GASTROINTESTINAL DISORDER [None]
  - HEADACHE [None]
  - MYALGIA [None]
  - MYASTHENIA GRAVIS [None]
  - NAUSEA [None]
  - THROAT TIGHTNESS [None]
  - VISION BLURRED [None]
  - VOMITING [None]
